FAERS Safety Report 9101819 (Version 1)
Quarter: 2013Q1

REPORT INFORMATION
  Report Type: Spontaneous
  Country: FR (occurrence: FR)
  Receive Date: 20130218
  Receipt Date: 20130218
  Transmission Date: 20140127
  Serious: Yes (Life-Threatening, Hospitalization)
  Sender: FDA-Public Use
  Company Number: FR-ASTRAZENECA-2013SE09864

PATIENT
  Age: 17983 Day
  Sex: Male

DRUGS (5)
  1. BRILIQUE [Suspect]
     Indication: MYOCARDIAL INFARCTION
     Route: 048
     Dates: start: 20121218, end: 20121218
  2. LOVENOX [Suspect]
     Indication: MYOCARDIAL INFARCTION
     Route: 058
     Dates: start: 20121218, end: 20121218
  3. KARDEGIC [Suspect]
     Indication: MYOCARDIAL INFARCTION
     Route: 048
     Dates: start: 20121220
  4. KARDEGIC [Suspect]
     Indication: MYOCARDIAL INFARCTION
     Route: 048
     Dates: start: 20121218, end: 20121218
  5. ATENOLOL [Concomitant]

REACTIONS (2)
  - Cardiac arrest [Recovered/Resolved]
  - Post procedural haematoma [Recovered/Resolved]
